FAERS Safety Report 7793799-8 (Version None)
Quarter: 2011Q4

REPORT INFORMATION
  Report Type: 
  Country: None (occurrence: None)
  Receive Date: 20111003
  Receipt Date: 20110927
  Transmission Date: 20120403
  Serious: Yes (Other)
  Sender: FDA-Public Use
  Company Number: PHHY2011JP03199

PATIENT
  Sex: Male
  Weight: 65 kg

DRUGS (25)
  1. AFINITOR [Suspect]
     Dosage: 10 MG, DAILY
     Route: 048
     Dates: start: 20100824
  2. ATELEC [Concomitant]
     Dosage: 10 MG, UNK
     Route: 048
     Dates: start: 20100628
  3. GLYCYRON [Concomitant]
     Indication: PROPHYLAXIS
     Dosage: 2 DF, UNK
     Route: 048
  4. LOXONIN [Concomitant]
     Dosage: 180 MG, UNK
     Route: 048
  5. SELBEX [Concomitant]
     Dosage: 150 MG, UNK
     Route: 048
  6. CANDESARTAN CILEXETIL [Concomitant]
     Dosage: 8 MG, UNK
     Route: 048
     Dates: start: 20100628
  7. DOXAZOSIN MESYLATE [Concomitant]
     Indication: METASTATIC RENAL CELL CARCINOMA
     Dosage: 4 MG, UNK
     Route: 048
     Dates: start: 20100628
  8. SELBEX [Concomitant]
     Dosage: 150 MG, UNK
     Route: 048
     Dates: start: 20100628
  9. OXYCONTIN [Concomitant]
     Dosage: 10 MG, UNK
     Route: 048
  10. ALLEGRA [Concomitant]
     Indication: PROPHYLAXIS
     Dosage: 20 ML, UNK
  11. AMLODIPINE [Concomitant]
     Dosage: 5 MG, UNK
     Route: 048
     Dates: start: 20100628
  12. DOXAZOSIN MESYLATE [Concomitant]
     Dosage: 4 MG, UNK
     Route: 048
  13. CANDESARTAN CILEXETIL [Concomitant]
     Dosage: 5 MG, UNK
     Route: 048
  14. NEO-MINOPHAGEN C [Concomitant]
     Dosage: 20 ML, UNK
     Route: 042
     Dates: start: 20100802, end: 20100805
  15. CELESTAMINE TAB [Concomitant]
     Indication: PROPHYLAXIS
     Dosage: 2 DF, UNK
     Route: 048
  16. FENTANYL [Concomitant]
     Indication: METASTATIC RENAL CELL CARCINOMA
     Dosage: 2.1 MG, UNK
     Route: 048
     Dates: start: 20101108
  17. ZOMETA [Concomitant]
     Indication: METASTATIC RENAL CELL CARCINOMA
     Dosage: UNK UKN, UNK
     Dates: start: 20100628
  18. CANDESARTAN CILEXETIL [Concomitant]
     Dosage: 8 MG, UNK
     Route: 048
  19. OXYCONTIN [Concomitant]
     Indication: METASTATIC RENAL CELL CARCINOMA
     Dosage: 10 MG, UNK
     Route: 048
     Dates: start: 20100628
  20. AFINITOR [Suspect]
     Indication: METASTATIC RENAL CELL CARCINOMA
     Dosage: 10 MG, DAILY
     Route: 048
     Dates: start: 20100628, end: 20100803
  21. SUNITINIB MALATE [Concomitant]
     Dosage: 50 MG, UNK
     Route: 048
     Dates: start: 20090720, end: 20100607
  22. ATELEC [Concomitant]
     Dosage: 10 MG, UNK
     Route: 048
  23. LOXONIN [Concomitant]
     Dosage: 180 MG, UNK
     Route: 048
     Dates: start: 20100628
  24. AMLODIPINE [Concomitant]
     Dosage: 5 MG, UNK
     Route: 048
  25. SENNOSIDE [Concomitant]
     Dosage: 24 MG, UNK
     Route: 048
     Dates: start: 20101108

REACTIONS (5)
  - ERYTHEMA MULTIFORME [None]
  - PRURITUS GENERALISED [None]
  - NEOPLASM PROGRESSION [None]
  - ERYTHEMA [None]
  - NEOPLASM MALIGNANT [None]
